FAERS Safety Report 25350456 (Version 2)
Quarter: 2025Q2

REPORT INFORMATION
  Report Type: Report from Study
  Country: GB (occurrence: GB)
  Receive Date: 20250523
  Receipt Date: 20250616
  Transmission Date: 20250717
  Serious: Yes (Other)
  Sender: SAMSUNG BIOEPIS
  Company Number: GB-SAMSUNG BIOEPIS-SB-2025-17746

PATIENT
  Age: 44 Year
  Sex: Male

DRUGS (1)
  1. ETANERCEPT [Suspect]
     Active Substance: ETANERCEPT
     Indication: Ankylosing spondylitis
     Route: 058
     Dates: start: 20250422

REACTIONS (10)
  - Suicidal ideation [Unknown]
  - Ankylosing spondylitis [Not Recovered/Not Resolved]
  - Headache [Not Recovered/Not Resolved]
  - Fatigue [Recovering/Resolving]
  - Brain fog [Unknown]
  - Condition aggravated [Unknown]
  - Impaired work ability [Unknown]
  - Depression [Unknown]
  - Migraine [Unknown]
  - Drug ineffective [Unknown]
